FAERS Safety Report 8054635-8 (Version None)
Quarter: 2012Q1

REPORT INFORMATION
  Report Type: 
  Country: None (occurrence: None)
  Receive Date: 20120119
  Receipt Date: 20120116
  Transmission Date: 20120608
  Serious: Yes (Hospitalization, Other)
  Sender: FDA-Public Use
  Company Number: US-ACCORD-011554

PATIENT
  Age: 58 Year
  Sex: Female
  Weight: 102 kg

DRUGS (4)
  1. SIMVASTATIN [Suspect]
     Route: 048
     Dates: start: 20111114, end: 20111116
  2. LOSARTAN/HYDROCHLOORTHIAZIDE [Concomitant]
  3. METFORMIN HCL [Concomitant]
  4. CYMBALTA [Concomitant]

REACTIONS (2)
  - HAEMATURIA [None]
  - MYALGIA [None]
